FAERS Safety Report 6601631-0 (Version None)
Quarter: 2010Q1

REPORT INFORMATION
  Report Type: 
  Country: None (occurrence: None)
  Receive Date: 20100225
  Receipt Date: 20100218
  Transmission Date: 20100710
  Serious: Yes (Other)
  Sender: FDA-Public Use
  Company Number: JP-ROCHE-676810

PATIENT
  Age: 85 Year
  Sex: Male
  Weight: 58 kg

DRUGS (4)
  1. TAMIFLU [Suspect]
     Indication: INFLUENZA
     Route: 048
     Dates: start: 20091220, end: 20091221
  2. TS-1 [Concomitant]
     Dosage: NOTE: 4 WEEKS ADMINISTRATION FOLLOWED BY 2 WEEKS REST.
     Route: 048
     Dates: start: 20080125, end: 20090216
  3. TS-1 [Concomitant]
     Dosage: NOTE: 2 WEEKS ADMINISTRATION FOLLOWED BY 1 WEEK REST.
     Route: 048
     Dates: start: 20090710, end: 20091220
  4. MAXIPIME [Concomitant]
     Dosage: FORM: INJECTION.
     Route: 042
     Dates: start: 20091220, end: 20091226

REACTIONS (2)
  - BLOOD CREATINE PHOSPHOKINASE INCREASED [None]
  - RHABDOMYOLYSIS [None]
